FAERS Safety Report 20200215 (Version 4)
Quarter: 2022Q2

REPORT INFORMATION
  Report Type: Spontaneous
  Country: IT (occurrence: IT)
  Receive Date: 20211217
  Receipt Date: 20220610
  Transmission Date: 20220721
  Serious: Yes (Other)
  Sender: FDA-Public Use
  Company Number: IT-BRACCO-2021IT05367

PATIENT
  Age: 75 Year
  Sex: Male

DRUGS (2)
  1. IOPAMIRO [Suspect]
     Active Substance: IOPAMIDOL
     Indication: Computerised tomogram abdomen
     Dosage: 120 ML, SINGLE
     Route: 042
  2. GASTROGRAFIN [Concomitant]
     Active Substance: DIATRIZOATE MEGLUMINE\DIATRIZOATE SODIUM
     Indication: Computerised tomogram abdomen
     Dosage: 50 ML, SINGLE
     Route: 048

REACTIONS (1)
  - Contrast encephalopathy [Recovered/Resolved]
